FAERS Safety Report 5064826-6 (Version None)
Quarter: 2006Q3

REPORT INFORMATION
  Report Type: 
  Country: None (occurrence: None)
  Receive Date: 20060725
  Receipt Date: 20060712
  Transmission Date: 20061208
  Serious: Yes (Hospitalization)
  Sender: FDA-Public Use
  Company Number: HQWYE548325MAY06

PATIENT
  Age: 65 Year
  Sex: Male
  Weight: 83.99 kg

DRUGS (58)
  1. RAPAMUNE [Suspect]
     Indication: PROPHYLAXIS AGAINST TRANSPLANT REJECTION
     Dosage: SEE IMAGE
     Route: 048
     Dates: start: 20060519, end: 20060520
  2. RAPAMUNE [Suspect]
     Indication: PROPHYLAXIS AGAINST TRANSPLANT REJECTION
     Dosage: SEE IMAGE
     Route: 048
     Dates: start: 20060521, end: 20060523
  3. RAPAMUNE [Suspect]
     Indication: PROPHYLAXIS AGAINST TRANSPLANT REJECTION
     Dosage: SEE IMAGE
     Route: 048
     Dates: start: 20060525, end: 20060526
  4. RAPAMUNE [Suspect]
     Indication: PROPHYLAXIS AGAINST TRANSPLANT REJECTION
     Dosage: SEE IMAGE
     Route: 048
     Dates: start: 20060527, end: 20060527
  5. RAPAMUNE [Suspect]
     Indication: PROPHYLAXIS AGAINST TRANSPLANT REJECTION
     Dosage: SEE IMAGE
     Route: 048
     Dates: start: 20060528, end: 20060530
  6. RAPAMUNE [Suspect]
     Indication: PROPHYLAXIS AGAINST TRANSPLANT REJECTION
     Dosage: SEE IMAGE
     Route: 048
     Dates: start: 20060531, end: 20060606
  7. CELLCEPT [Suspect]
     Indication: PROPHYLAXIS AGAINST TRANSPLANT REJECTION
     Dosage: SEE IMAGE
     Route: 048
     Dates: start: 20060519, end: 20060519
  8. CELLCEPT [Suspect]
     Indication: PROPHYLAXIS AGAINST TRANSPLANT REJECTION
     Dosage: SEE IMAGE
     Route: 048
     Dates: start: 20060520, end: 20060603
  9. CELLCEPT [Suspect]
     Indication: PROPHYLAXIS AGAINST TRANSPLANT REJECTION
     Dosage: SEE IMAGE
     Route: 048
     Dates: start: 20060604, end: 20060604
  10. CELLCEPT [Suspect]
     Indication: PROPHYLAXIS AGAINST TRANSPLANT REJECTION
     Dosage: SEE IMAGE
     Route: 048
     Dates: start: 20060605
  11. PREDNISONE TAB [Suspect]
     Indication: PROPHYLAXIS AGAINST TRANSPLANT REJECTION
     Dosage: SEE IMAGE
     Dates: start: 20060522, end: 20060522
  12. PREDNISONE TAB [Suspect]
     Indication: PROPHYLAXIS AGAINST TRANSPLANT REJECTION
     Dosage: SEE IMAGE
     Dates: start: 20060523, end: 20060523
  13. PREDNISONE TAB [Suspect]
     Indication: PROPHYLAXIS AGAINST TRANSPLANT REJECTION
     Dosage: SEE IMAGE
     Dates: start: 20060524, end: 20060525
  14. PREDNISONE TAB [Suspect]
     Indication: PROPHYLAXIS AGAINST TRANSPLANT REJECTION
     Dosage: SEE IMAGE
     Dates: start: 20060526, end: 20060526
  15. PREDNISONE TAB [Suspect]
     Indication: PROPHYLAXIS AGAINST TRANSPLANT REJECTION
     Dosage: SEE IMAGE
     Dates: start: 20060527, end: 20060527
  16. PREDNISONE TAB [Suspect]
     Indication: PROPHYLAXIS AGAINST TRANSPLANT REJECTION
     Dosage: SEE IMAGE
     Dates: start: 20060528, end: 20060528
  17. PREDNISONE TAB [Suspect]
     Indication: PROPHYLAXIS AGAINST TRANSPLANT REJECTION
     Dosage: SEE IMAGE
     Dates: start: 20060529
  18. SOLU-MEDROL [Concomitant]
  19. SOLU-MEDROL [Concomitant]
  20. LABETALOL HCL [Concomitant]
  21. NIFEDIPINE [Concomitant]
  22. NOVOLOG [Concomitant]
  23. NOVOLOG [Concomitant]
  24. BACTRIM [Concomitant]
  25. MYCELEX [Concomitant]
  26. IBERET-FOLIC (FERROUS SULFATE/FOLIC ACID/VITAMINS NOS) [Concomitant]
  27. PROTONIX [Concomitant]
  28. PAMIDRONATE DISODIUM [Concomitant]
  29. PAMIDRONATE DISODIUM [Concomitant]
  30. BUPRENEX (BUPRENORPHINE HYDROCHLORIDE) [Concomitant]
  31. SIMULECT [Concomitant]
  32. METOPROLOL (METOPROLOL) [Concomitant]
  33. METOPROLOL (METOPROLOL) [Concomitant]
  34. METOPROLOL (METOPROLOL) [Concomitant]
  35. METOPROLOL (METOPROLOL) [Concomitant]
  36. METOPROLOL (METOPROLOL) [Concomitant]
  37. METOPROLOL (METOPROLOL) [Concomitant]
  38. METOPROLOL (METOPROLOL) [Concomitant]
  39. METOPROLOL (METOPROLOL) [Concomitant]
  40. METOPROLOL (METOPROLOL) [Concomitant]
  41. METOPROLOL (METOPROLOL) [Concomitant]
  42. METOPROLOL (METOPROLOL) [Concomitant]
  43. ARANESP [Concomitant]
  44. ASPIRIN [Concomitant]
  45. AMBIEN [Concomitant]
  46. LIPITOR [Concomitant]
  47. PLAVIX [Concomitant]
  48. KCL-ZYMA (POTASSIUM CHLORIDE) [Concomitant]
  49. KCL-ZYMA (POTASSIUM CHLORIDE) [Concomitant]
  50. KCL-ZYMA (POTASSIUM CHLORIDE) [Concomitant]
  51. KCL-ZYMA (POTASSIUM CHLORIDE) [Concomitant]
  52. ISOSORBIDE (ISOSORBIDE) [Concomitant]
  53. IMDUR [Concomitant]
  54. COLACE (DOCUSATE SODIUM) [Concomitant]
  55. FLOMAX [Concomitant]
  56. FLOMAX [Concomitant]
  57. TUMS (CALCIUM CARBONATE/MAGNESIUM CARBONATE/MAGNESIUM TRISILICATE) [Concomitant]
  58. NEUTRA-PHOS (POTASSIUM PHOSPHATE DIBASIC/POTASSIUM PHOSPHATE MONOBASIC [Concomitant]

REACTIONS (12)
  - ACUTE MYOCARDIAL INFARCTION [None]
  - ANGIOPATHY [None]
  - ATRIAL FIBRILLATION [None]
  - ATRIAL FLUTTER [None]
  - BLOOD LACTATE DEHYDROGENASE INCREASED [None]
  - BLOOD UREA INCREASED [None]
  - CENTRAL LINE INFECTION [None]
  - CHEST X-RAY ABNORMAL [None]
  - CORONARY ARTERY OCCLUSION [None]
  - HYPOPHOSPHATAEMIA [None]
  - IMMUNOSUPPRESSANT DRUG LEVEL INCREASED [None]
  - PSEUDOMONAS INFECTION [None]
